FAERS Safety Report 7089526-2 (Version None)
Quarter: 2010Q4

REPORT INFORMATION
  Report Type: 
  Country: None (occurrence: None)
  Receive Date: 20101108
  Receipt Date: 20101008
  Transmission Date: 20110411
  Serious: No
  Sender: FDA-Public Use
  Company Number: US-BAYER-201037262NA

PATIENT
  Age: 45 Year
  Sex: Male

DRUGS (2)
  1. MAGNEVIST [Suspect]
     Indication: NUCLEAR MAGNETIC RESONANCE IMAGING BRAIN
     Dosage: TOTAL DOSE REPORTED AS BOTH 20 MLA ND 24 ML
     Route: 042
     Dates: start: 20101008, end: 20101008
  2. UNSPECIFIED MEDICATION [Concomitant]
     Indication: BLOOD PRESSURE INCREASED

REACTIONS (4)
  - BLOOD PRESSURE INCREASED [None]
  - DYSPNOEA [None]
  - FLUSHING [None]
  - HYPERHIDROSIS [None]
